FAERS Safety Report 12667979 (Version 3)
Quarter: 2016Q4

REPORT INFORMATION
  Report Type: Spontaneous
  Country: BE (occurrence: BE)
  Receive Date: 20160819
  Receipt Date: 20161013
  Transmission Date: 20170207
  Serious: Yes (Hospitalization)
  Sender: FDA-Public Use
  Company Number: BE-BEH-2016072774

PATIENT
  Age: 38 Year
  Sex: Male
  Weight: 82.3 kg

DRUGS (1)
  1. PRIVIGEN [Suspect]
     Active Substance: HUMAN IMMUNOGLOBULIN G
     Indication: PRODUCT USED FOR UNKNOWN INDICATION
     Dosage: UNK
     Route: 065
     Dates: start: 20140604

REACTIONS (5)
  - Henoch-Schonlein purpura [Recovered/Resolved]
  - Polyarthritis [Recovered/Resolved]
  - Purpura [Recovered/Resolved]
  - Rash [Recovered/Resolved]
  - Skin necrosis [Recovered/Resolved]

NARRATIVE: CASE EVENT DATE: 20140911
